FAERS Safety Report 8065554 (Version 2)
Quarter: 2013Q1

REPORT INFORMATION
  Report Type: Spontaneous
  Country: US (occurrence: US)
  Receive Date: 20110802
  Receipt Date: 20130213
  Transmission Date: 20140127
  Serious: Yes (Hospitalization, Other)
  Sender: FDA-Public Use
  Company Number: PHEH2011US00515

PATIENT
  Sex: Male

DRUGS (3)
  1. AREDIA [Suspect]
     Dosage: 90 MG, QMO
     Route: 042
     Dates: start: 1999
  2. AREDIA [Suspect]
     Dosage: 90 MG, QMO
     Route: 042
     Dates: start: 200002, end: 20011106
  3. GLYBURIDE [Concomitant]
     Indication: DIABETES MELLITUS

REACTIONS (27)
  - Pneumonia [Unknown]
  - Cough [Unknown]
  - Myalgia [Unknown]
  - Decreased appetite [Unknown]
  - Malignant melanoma [Unknown]
  - Neutropenia [Unknown]
  - Peripheral artery aneurysm [Unknown]
  - Convulsion [Unknown]
  - Presyncope [Unknown]
  - Pulmonary oedema [Unknown]
  - Staphylococcal infection [Unknown]
  - Streptococcal bacteraemia [Unknown]
  - Urinary retention [Unknown]
  - Respiratory failure [Unknown]
  - Anaemia [Unknown]
  - Benign prostatic hyperplasia [Unknown]
  - Interstitial lung disease [Unknown]
  - Parainfluenzae virus infection [Unknown]
  - Oedema peripheral [Unknown]
  - Hypophosphataemia [Unknown]
  - Hypomagnesaemia [Unknown]
  - Tooth abscess [Unknown]
  - Influenza like illness [Recovering/Resolving]
  - Fatigue [Unknown]
  - Bone pain [Unknown]
  - Oral candidiasis [Unknown]
  - Hepatic cyst [Unknown]
